FAERS Safety Report 5798780-6 (Version None)
Quarter: 2008Q3

REPORT INFORMATION
  Report Type: 
  Country: None (occurrence: None)
  Receive Date: 20080702
  Receipt Date: 20080617
  Transmission Date: 20090109
  Serious: Yes (Hospitalization)
  Sender: FDA-Public Use
  Company Number: IT-GENENTECH-263343

PATIENT
  Sex: Female

DRUGS (2)
  1. BEVACIZUMAB [Suspect]
     Indication: COLORECTAL CANCER METASTATIC
     Dosage: 487 MG, UNK
     Route: 042
     Dates: start: 20080612
  2. OXALIPLATIN [Suspect]
     Indication: COLORECTAL CANCER METASTATIC
     Dosage: 240 MG, UNK
     Route: 042
     Dates: start: 20080612

REACTIONS (1)
  - INTESTINAL OBSTRUCTION [None]
